FAERS Safety Report 14377878 (Version 1)
Quarter: 2018Q1

REPORT INFORMATION
  Report Type: Spontaneous
  Country: US (occurrence: US)
  Receive Date: 20180111
  Receipt Date: 20180111
  Transmission Date: 20180509
  Serious: No
  Sender: FDA-Public Use
  Company Number: US-SUNOVION-2017SUN005523

PATIENT
  Age: 30 Year
  Sex: Male

DRUGS (5)
  1. LATUDA [Suspect]
     Active Substance: LURASIDONE HYDROCHLORIDE
     Dosage: 20 MG, UNK
     Route: 048
  2. LATUDA [Suspect]
     Active Substance: LURASIDONE HYDROCHLORIDE
     Dosage: 40 UNK, UNK
     Route: 048
  3. RISPERDAL [Suspect]
     Active Substance: RISPERIDONE
     Dosage: UNK
  4. LITHIUM. [Concomitant]
     Active Substance: LITHIUM
  5. LATUDA [Suspect]
     Active Substance: LURASIDONE HYDROCHLORIDE
     Indication: BIPOLAR DISORDER
     Dosage: 40 MG, UNK
     Route: 048

REACTIONS (7)
  - Bipolar disorder [Unknown]
  - Inappropriate affect [Unknown]
  - Hallucination, auditory [Unknown]
  - Depressed mood [Unknown]
  - Disturbance in attention [Unknown]
  - Drug ineffective [Unknown]
  - Insomnia [Unknown]
